FAERS Safety Report 8838883 (Version 1)
Quarter: 2012Q4

REPORT INFORMATION
  Report Type: 
  Country: BR (occurrence: BR)
  Receive Date: 20121015
  Receipt Date: 20121015
  Transmission Date: 20130627
  Serious: Yes (Other)
  Sender: FDA-Public Use
  Company Number: BR-AMGEN-BRASP2011016937

PATIENT
  Age: 79 Year
  Sex: Female
  Weight: 50 kg

DRUGS (13)
  1. ENBREL [Suspect]
     Indication: RHEUMATOID ARTHRITIS
     Dosage: 50 mg, weekly
     Route: 058
     Dates: start: 20110118
  2. ENBREL [Suspect]
     Dosage: 50 mg, qwk
     Route: 058
     Dates: start: 201201
  3. METFORMIN [Concomitant]
     Indication: DIABETES MELLITUS
     Dosage: UNK
     Dates: start: 2009
  4. DIAMICRON [Concomitant]
     Indication: DIABETES MELLITUS
     Dosage: UNK
     Dates: start: 2009
  5. BENICAR [Concomitant]
     Indication: HYPERTENSION
     Dosage: 40 mg, frequency not specified
     Dates: start: 2009
  6. BENICAR [Concomitant]
     Dosage: 40 mg, once daily
  7. ATENOLOL [Concomitant]
     Indication: HYPERTENSION
     Dosage: 50 mg, 1x/day
     Dates: start: 2009
  8. MANIVASC [Concomitant]
     Indication: HYPERTENSION
     Dosage: UNK
     Dates: start: 2009
  9. METFORMIN HYDROCHLORIDE [Concomitant]
     Indication: DIABETES MELLITUS
     Dosage: 500 mg, 1x/day
     Dates: start: 2009
  10. METHOTREXATE [Concomitant]
     Dosage: 3 tablets of 20mg (60 mg), once weekly
  11. ALENDRONATE SODIUM [Concomitant]
     Dosage: 70 mg, weekly
  12. LOSARTAN POTASSIUM [Concomitant]
     Indication: HYPERTENSION
     Dosage: 50 mg, 1x/day
  13. ONGLYZA [Concomitant]
     Indication: DIABETES MELLITUS
     Dosage: 5 mg, 1x/day

REACTIONS (5)
  - Rhinorrhoea [Not Recovered/Not Resolved]
  - Dysphonia [Not Recovered/Not Resolved]
  - Influenza [Recovering/Resolving]
  - Rhinitis [Recovering/Resolving]
  - Injection site haemorrhage [Unknown]
